FAERS Safety Report 7525888-7 (Version None)
Quarter: 2011Q2

REPORT INFORMATION
  Report Type: 
  Country: None (occurrence: None)
  Receive Date: 20110606
  Receipt Date: 20110520
  Transmission Date: 20111010
  Serious: Yes (Hospitalization, Congenital Anomaly)
  Sender: FDA-Public Use
  Company Number: A0930272A

PATIENT
  Sex: Male

DRUGS (3)
  1. PRENATAL VITAMINS [Concomitant]
     Route: 064
  2. PAXIL [Suspect]
     Dosage: 10MG PER DAY
     Route: 064
     Dates: start: 20030101, end: 20060101
  3. CEFTIN [Concomitant]
     Route: 064

REACTIONS (3)
  - DRUG EXPOSURE DURING PREGNANCY [None]
  - CONGENITAL AORTIC VALVE STENOSIS [None]
  - BICUSPID AORTIC VALVE [None]
